FAERS Safety Report 10308028 (Version 1)
Quarter: 2014Q3

REPORT INFORMATION
  Report Type: Spontaneous
  Country: ZA (occurrence: None)
  Receive Date: 20140711
  Receipt Date: 20140711
  Transmission Date: 20150326
  Serious: Yes (Other)
  Sender: FDA-Public Use
  Company Number: SYM-2014-22867

PATIENT
  Sex: Female

DRUGS (3)
  1. PROTEIN SHAKE (PROTEIN SUPPLEMENTS( (NULL) [Concomitant]
  2. WELLBUTRIN XL [Suspect]
     Active Substance: BUPROPION HYDROCHLORIDE
     Indication: BULIMIA NERVOSA
     Route: 048
  3. FLUOXETINE (FLUOXETINE) [Concomitant]
     Active Substance: FLUOXETINE HYDROCHLORIDE

REACTIONS (3)
  - Blood phosphorus abnormal [None]
  - Convulsion [None]
  - Incorrect dose administered [None]
